FAERS Safety Report 4758861-2 (Version None)
Quarter: 2005Q3

REPORT INFORMATION
  Report Type: 
  Country: None (occurrence: None)
  Receive Date: 20050901
  Receipt Date: 20050707
  Transmission Date: 20060218
  Serious: Yes (Hospitalization)
  Sender: FDA-Public Use
  Company Number: US-MERCK-0507USA00948

PATIENT
  Age: 56 Year
  Sex: Female
  Weight: 114 kg

DRUGS (9)
  1. VIOXX [Suspect]
     Indication: ARTHRALGIA
     Route: 048
     Dates: start: 20010101, end: 20040801
  2. LIPITOR [Concomitant]
     Route: 065
  3. PRILOSEC [Concomitant]
     Route: 065
  4. ENALAPRIL MALEATE [Concomitant]
     Route: 065
  5. NORVASC [Concomitant]
     Route: 065
  6. METFORMIN [Concomitant]
     Route: 065
  7. AVANDIA [Concomitant]
     Route: 065
  8. GLUCOTROL [Concomitant]
     Route: 065
  9. VITAMINS (UNSPECIFIED) [Concomitant]
     Route: 065

REACTIONS (27)
  - ATHEROSCLEROSIS [None]
  - BACTERIA URINE IDENTIFIED [None]
  - BLOOD CULTURE POSITIVE [None]
  - BLOOD TRIGLYCERIDES INCREASED [None]
  - CARDIAC FAILURE [None]
  - CARDIAC FAILURE CONGESTIVE [None]
  - CELLULITIS [None]
  - CEREBROVASCULAR ACCIDENT [None]
  - CORONARY ARTERY DISEASE [None]
  - DYSPEPSIA [None]
  - EMOTIONAL DISTRESS [None]
  - ESCHERICHIA BACTERAEMIA [None]
  - ESCHERICHIA INFECTION [None]
  - INFUSION SITE PHLEBITIS [None]
  - INFUSION SITE REACTION [None]
  - INJECTION SITE PHLEBITIS [None]
  - ISCHAEMIC CARDIOMYOPATHY [None]
  - MITRAL VALVE INCOMPETENCE [None]
  - MYOCARDIAL INFARCTION [None]
  - NASAL SEPTUM DEVIATION [None]
  - OEDEMA PERIPHERAL [None]
  - PULMONARY HYPERTENSION [None]
  - PULMONARY OEDEMA [None]
  - PULMONARY VALVE INCOMPETENCE [None]
  - SINUS TACHYCARDIA [None]
  - SINUSITIS [None]
  - TRICUSPID VALVE INCOMPETENCE [None]
